FAERS Safety Report 9867454 (Version 1)
Quarter: 2014Q1

REPORT INFORMATION
  Report Type: Spontaneous
  Country: DE (occurrence: DE)
  Receive Date: 20140204
  Receipt Date: 20140204
  Transmission Date: 20141002
  Serious: Yes (Hospitalization)
  Sender: FDA-Public Use
  Company Number: DE-DRREDDYS-GER/GER/14/0037649

PATIENT
  Age: 49 Year
  Sex: Male
  Weight: 115 kg

DRUGS (1)
  1. QUETIAPINE [Suspect]
     Indication: SCHIZOPHRENIA
     Route: 048
     Dates: end: 20131002

REACTIONS (2)
  - Pancreatitis [Not Recovered/Not Resolved]
  - Sepsis [Not Recovered/Not Resolved]
